FAERS Safety Report 10137418 (Version 1)
Quarter: 2014Q2

REPORT INFORMATION
  Report Type: Spontaneous
  Country: US (occurrence: None)
  Receive Date: 20140428
  Receipt Date: 20140428
  Transmission Date: 20141212
  Serious: Yes (Other)
  Sender: FDA-Public Use
  Company Number: None

PATIENT
  Age: 51 Year
  Sex: Female
  Weight: 58.06 kg

DRUGS (1)
  1. METOPROLOL ER SUCCINATE [Suspect]
     Indication: HYPERTENSION
     Dosage: 1 PILL
     Route: 048
     Dates: start: 20140301, end: 20140425

REACTIONS (2)
  - Syncope [None]
  - Tachycardia [None]
